FAERS Safety Report 8781728 (Version 1)
Quarter: 2012Q4

REPORT INFORMATION
  Report Type: Report from Study
  Country: GB (occurrence: GB)
  Receive Date: 20120913
  Receipt Date: 20120913
  Transmission Date: 20130627
  Serious: Yes (Hospitalization)
  Sender: FDA-Public Use
  Company Number: GB-JNJFOC-20120901356

PATIENT
  Age: 27 Year
  Sex: Male
  Weight: 88 kg

DRUGS (4)
  1. USTEKINUMAB [Suspect]
     Indication: PSORIASIS
     Route: 058
     Dates: start: 20111114
  2. TRAMADOL [Concomitant]
     Route: 065
     Dates: start: 20110815
  3. NYSTATIN [Concomitant]
     Route: 065
     Dates: start: 20120715
  4. CELECOXIB [Concomitant]
     Route: 065
     Dates: start: 20120213

REACTIONS (6)
  - Pustular psoriasis [Unknown]
  - Psoriasis [Not Recovered/Not Resolved]
  - Vomiting [Unknown]
  - Nausea [Unknown]
  - Cough [Unknown]
  - Headache [Unknown]
